FAERS Safety Report 9158107 (Version 1)
Quarter: 2013Q1

REPORT INFORMATION
  Report Type: Spontaneous
  Country: FR (occurrence: None)
  Receive Date: 20130212
  Receipt Date: 20130212
  Transmission Date: 20140127
  Serious: Yes (Hospitalization)
  Sender: FDA-Public Use
  Company Number: 2013000016

PATIENT
  Age: 88 Year
  Sex: Male

DRUGS (3)
  1. ACEON (PERINDOPRIL ERBUMINE) TABLET [Suspect]
     Route: 048
     Dates: start: 20120615, end: 20120816
  2. KALEORID [Suspect]
     Route: 048
     Dates: start: 20120615, end: 20120816
  3. ALDALIX (FUROSEMIDE, SPIRONOLACTONE) [Concomitant]

REACTIONS (8)
  - Chest pain [None]
  - Ventricular extrasystoles [None]
  - Renal failure [None]
  - Hyperkalaemia [None]
  - Hyponatraemia [None]
  - Hypotension [None]
  - Malaise [None]
  - Dizziness [None]
